FAERS Safety Report 7931447-4 (Version None)
Quarter: 2011Q4

REPORT INFORMATION
  Report Type: 
  Country: None (occurrence: None)
  Receive Date: 20111121
  Receipt Date: 20111111
  Transmission Date: 20120403
  Serious: Yes (Hospitalization)
  Sender: FDA-Public Use
  Company Number: MX-US-EMD SERONO, INC.-7095860

PATIENT
  Sex: Female

DRUGS (1)
  1. SAIZEN [Suspect]
     Indication: PRADER-WILLI SYNDROME
     Route: 058
     Dates: end: 20111111

REACTIONS (2)
  - MYALGIA [None]
  - OVERDOSE [None]
